FAERS Safety Report 17121797 (Version 1)
Quarter: 2019Q4

REPORT INFORMATION
  Report Type: Spontaneous
  Country: US (occurrence: US)
  Receive Date: 20191206
  Receipt Date: 20191206
  Transmission Date: 20200122
  Serious: No
  Sender: FDA-Public Use
  Company Number: US-NOVOPROD-559478

PATIENT
  Age: 67 Year
  Sex: Female

DRUGS (3)
  1. NOVOLIN R [Suspect]
     Active Substance: INSULIN HUMAN
     Dosage: 35 U, QD (5 UNITS IN THE MORNING, 20 UNITS AT  LUNCH AND 10 UNITS AT DINNER)
     Route: 058
  2. LEVEMIR [Concomitant]
     Active Substance: INSULIN DETEMIR
     Indication: TYPE 2 DIABETES MELLITUS
     Dosage: UNK
     Route: 058
  3. NOVOLIN R [Suspect]
     Active Substance: INSULIN HUMAN
     Indication: TYPE 2 DIABETES MELLITUS
     Dosage: UNK
     Route: 058
     Dates: start: 20170516

REACTIONS (3)
  - Pruritus [Not Recovered/Not Resolved]
  - Blood glucose increased [Unknown]
  - Urticaria [Not Recovered/Not Resolved]

NARRATIVE: CASE EVENT DATE: 2017
